FAERS Safety Report 25206814 (Version 2)
Quarter: 2025Q2

REPORT INFORMATION
  Report Type: Spontaneous
  Country: US (occurrence: US)
  Receive Date: 20250417
  Receipt Date: 20250502
  Transmission Date: 20250716
  Serious: Yes (Hospitalization, Other)
  Sender: INSMED
  Company Number: US-INSMED, INC.-2025-01328-US

PATIENT
  Sex: Male

DRUGS (1)
  1. ARIKAYCE [Suspect]
     Active Substance: AMIKACIN
     Indication: Product used for unknown indication
     Dosage: 590 MILLIGRAM, QD
     Route: 055
     Dates: start: 20250301

REACTIONS (4)
  - Bronchial stent insertion [Unknown]
  - Dyspnoea [Unknown]
  - Secretion discharge [Unknown]
  - Device occlusion [Unknown]

NARRATIVE: CASE EVENT DATE: 20250101
